FAERS Safety Report 17000572 (Version 2)
Quarter: 2019Q4

REPORT INFORMATION
  Report Type: Spontaneous
  Country: US (occurrence: US)
  Receive Date: 20191106
  Receipt Date: 20191108
  Transmission Date: 20200122
  Serious: Yes (Life-Threatening, Hospitalization)
  Sender: FDA-Public Use
  Company Number: US-PFIZER INC-2019472991

PATIENT
  Age: 76 Year
  Sex: Female

DRUGS (3)
  1. DOXORUBICIN [Concomitant]
     Active Substance: DOXORUBICIN
     Indication: INFLAMMATORY CARCINOMA OF THE BREAST
     Dosage: UNK, CYCLIC (FOURTH CYCLE)
  2. DOCETAXEL. [Suspect]
     Active Substance: DOCETAXEL
     Indication: INFLAMMATORY CARCINOMA OF THE BREAST
     Dosage: UNK, CYCLIC (FOURTH CYCLE)
  3. CYCLOPHOSPHAMIDE. [Concomitant]
     Active Substance: CYCLOPHOSPHAMIDE
     Indication: INFLAMMATORY CARCINOMA OF THE BREAST
     Dosage: UNK, CYCLIC (FOURTH CYCLE)

REACTIONS (6)
  - Shock [Not Recovered/Not Resolved]
  - Generalised oedema [Unknown]
  - Pulmonary oedema [Not Recovered/Not Resolved]
  - Pleural effusion [Unknown]
  - Capillary leak syndrome [Not Recovered/Not Resolved]
  - Atrial fibrillation [Unknown]
